FAERS Safety Report 4976665-2 (Version None)
Quarter: 2006Q2

REPORT INFORMATION
  Report Type: 
  Country: None (occurrence: None)
  Receive Date: 20060419
  Receipt Date: 20050412
  Transmission Date: 20061013
  Serious: Yes (Death, Hospitalization)
  Sender: FDA-Public Use
  Company Number: US-MERCK-0504USA02017

PATIENT
  Age: 76 Year
  Sex: Female
  Weight: 91 kg

DRUGS (8)
  1. VIOXX [Suspect]
     Indication: ARTHRITIS
     Route: 048
     Dates: start: 19991119, end: 20030219
  2. PROVENTIL [Concomitant]
     Route: 065
  3. ASPIRIN [Concomitant]
     Route: 065
  4. NITROGLYCERIN [Concomitant]
     Route: 048
  5. POTASSIUM (UNSPECIFIED) [Concomitant]
     Route: 048
  6. SULAR [Concomitant]
     Route: 048
  7. XANAX [Concomitant]
     Route: 065
  8. LASIX [Concomitant]
     Route: 048

REACTIONS (25)
  - ACUTE RESPIRATORY FAILURE [None]
  - AORTIC VALVE STENOSIS [None]
  - ASTHENIA [None]
  - BRONCHITIS BACTERIAL [None]
  - CARDIAC FAILURE [None]
  - CARDIAC FAILURE CONGESTIVE [None]
  - CARDIOMEGALY [None]
  - CARDIOMYOPATHY [None]
  - CAROTID ARTERY STENOSIS [None]
  - CEREBRAL ISCHAEMIA [None]
  - CEREBROVASCULAR DISORDER [None]
  - CHRONIC OBSTRUCTIVE PULMONARY DISEASE [None]
  - CORONARY ARTERY STENOSIS [None]
  - DEATH [None]
  - FALL [None]
  - HEART VALVE INSUFFICIENCY [None]
  - INJURY [None]
  - LOBAR PNEUMONIA [None]
  - MITRAL VALVE INCOMPETENCE [None]
  - OSTEOPOROSIS [None]
  - OVERDOSE [None]
  - PNEUMONIA [None]
  - PULMONARY VALVE INCOMPETENCE [None]
  - RESPIRATORY FAILURE [None]
  - TRICUSPID VALVE INCOMPETENCE [None]
